FAERS Safety Report 16733495 (Version 1)
Quarter: 2019Q3

REPORT INFORMATION
  Report Type: Report from Study
  Country: US (occurrence: US)
  Receive Date: 20190823
  Receipt Date: 20190823
  Transmission Date: 20191005
  Serious: Yes (Hospitalization)
  Sender: FDA-Public Use
  Company Number: US-GILEAD-2019-0424582

PATIENT
  Age: 52 Year
  Sex: Female

DRUGS (1)
  1. AMBRISENTAN [Suspect]
     Active Substance: AMBRISENTAN
     Indication: PRODUCT USED FOR UNKNOWN INDICATION
     Dosage: 10 MG, UNKNOWN FREQUENCY
     Route: 065
     Dates: start: 20120924

REACTIONS (2)
  - Malaise [Not Recovered/Not Resolved]
  - Product dose omission [Recovered/Resolved]
